FAERS Safety Report 8500248-0 (Version None)
Quarter: 2012Q3

REPORT INFORMATION
  Report Type: 
  Country: None (occurrence: None)
  Receive Date: 20120710
  Receipt Date: 20120702
  Transmission Date: 20120928
  Serious: Yes (Other)
  Sender: FDA-Public Use
  Company Number: US-BAYER-2011-005692

PATIENT
  Age: 56 Year
  Sex: Male
  Weight: 101 kg

DRUGS (14)
  1. DEXTROSE [Concomitant]
     Dosage: 25 CC
     Dates: start: 20060403, end: 20060403
  2. HEPARIN [Concomitant]
     Dosage: UNK
     Dates: start: 20060403, end: 20060403
  3. PANCURONIUM BROMIDE [Concomitant]
     Dosage: UNK
     Dates: start: 20060403, end: 20060403
  4. NITROGLYCERIN [Concomitant]
     Dosage: UNK
     Dates: start: 20060403, end: 20060403
  5. DOPAMINE HCL [Concomitant]
     Dosage: UNK
     Dates: start: 20060403, end: 20060403
  6. TRASYLOL [Suspect]
     Indication: PRODUCT USED FOR UNKNOWN INDICATION
     Route: 042
  7. ANTACIDS [Concomitant]
  8. INSULIN [Concomitant]
     Dosage: UNK
     Dates: start: 20060403, end: 20060403
  9. PROTAMINE SULFATE [Concomitant]
     Dosage: UNK
     Dates: start: 20060403, end: 20060403
  10. ASPIRIN [Concomitant]
  11. ROCURONIUM BROMIDE [Concomitant]
     Dosage: UNK
     Dates: start: 20060403, end: 20060403
  12. LASIX [Concomitant]
     Dosage: 20 MG, UNK
     Dates: start: 20060403, end: 20060403
  13. SUFENTANIL CITRATE [Concomitant]
     Dosage: UNK
     Dates: start: 20060403, end: 20060403
  14. PHENYLEPHRINE HCL [Concomitant]

REACTIONS (13)
  - FEAR [None]
  - PAIN [None]
  - MULTI-ORGAN FAILURE [None]
  - UNEVALUABLE EVENT [None]
  - FEAR OF DEATH [None]
  - RENAL FAILURE [None]
  - INJURY [None]
  - EMOTIONAL DISTRESS [None]
  - RENAL INJURY [None]
  - NERVOUSNESS [None]
  - DEPRESSION [None]
  - ANXIETY [None]
  - ANHEDONIA [None]
